FAERS Safety Report 7375776-4 (Version None)
Quarter: 2011Q1

REPORT INFORMATION
  Report Type: 
  Country: None (occurrence: None)
  Receive Date: 20110317
  Receipt Date: 20110303
  Transmission Date: 20110831
  Serious: Yes (Other)
  Sender: FDA-Public Use
  Company Number: 2011SP000712

PATIENT
  Age: 40 Year
  Sex: Female
  Weight: 110 kg

DRUGS (6)
  1. ALVESCO [Suspect]
     Indication: ASTHMA
     Dosage: 160 UG QD, INHALATION
     Route: 055
     Dates: start: 20110126, end: 20110224
  2. LEVOTHYROXINE SODIUM [Concomitant]
  3. FORMOTOP [Concomitant]
  4. CLARITHROMYCIN [Concomitant]
  5. JODID [Concomitant]
  6. CETURUZUBE [Concomitant]

REACTIONS (3)
  - DYSPHONIA [None]
  - PHARYNGITIS [None]
  - ASTHMA [None]
